FAERS Safety Report 6756174-0 (Version None)
Quarter: 2010Q2

REPORT INFORMATION
  Report Type: 
  Country: None (occurrence: None)
  Receive Date: 20100603
  Receipt Date: 20100603
  Transmission Date: 20101027
  Serious: Yes (Other)
  Sender: FDA-Public Use
  Company Number: None

PATIENT
  Sex: Female

DRUGS (1)
  1. REVATIO [Suspect]
     Indication: COR PULMONALE CHRONIC
     Dosage: 20MG 3 TIMES A DAY BY MOUTH
     Route: 048
     Dates: start: 20100401

REACTIONS (2)
  - MIDDLE INSOMNIA [None]
  - PAIN [None]
